FAERS Safety Report 12467785 (Version 1)
Quarter: 2016Q2

REPORT INFORMATION
  Report Type: Report from Study
  Country: US (occurrence: US)
  Receive Date: 20160615
  Receipt Date: 20160615
  Transmission Date: 20160815
  Serious: Yes (Other)
  Sender: FDA-Public Use
  Company Number: US-ARIAD-2014US003410

PATIENT

DRUGS (1)
  1. ICLUSIG [Suspect]
     Active Substance: PONATINIB
     Indication: CHRONIC MYELOID LEUKAEMIA
     Dosage: 30 MG, QD
     Route: 048
     Dates: start: 20140617

REACTIONS (8)
  - Lower respiratory tract infection [Unknown]
  - Rash [Unknown]
  - Faeces discoloured [Not Recovered/Not Resolved]
  - Nausea [Unknown]
  - Painful respiration [Unknown]
  - Musculoskeletal pain [Unknown]
  - Localised infection [Unknown]
  - Diarrhoea [Not Recovered/Not Resolved]

NARRATIVE: CASE EVENT DATE: 2014
